FAERS Safety Report 7413714-6 (Version None)
Quarter: 2011Q2

REPORT INFORMATION
  Report Type: 
  Country: None (occurrence: None)
  Receive Date: 20110413
  Receipt Date: 20110329
  Transmission Date: 20111010
  Serious: Yes (Death, Other)
  Sender: FDA-Public Use
  Company Number: CA-BAXTER-2011BH008136

PATIENT

DRUGS (3)
  1. TERBUTALINE [Concomitant]
     Indication: CARDIOMYOPATHY NEONATAL
     Route: 065
  2. DEXAMETHASONE [Concomitant]
     Indication: CARDIOMYOPATHY NEONATAL
     Route: 065
  3. IMMUNE GLOBULIN INTRAVENOUS (HUMAN) [Suspect]
     Indication: CARDIOMYOPATHY NEONATAL
     Route: 064

REACTIONS (5)
  - DEATH NEONATAL [None]
  - ATRIOVENTRICULAR BLOCK COMPLETE [None]
  - DRUG EXPOSURE DURING PREGNANCY [None]
  - HYDROPS FOETALIS [None]
  - MATERNAL DRUGS AFFECTING FOETUS [None]
